FAERS Safety Report 8268815-X (Version None)
Quarter: 2012Q2

REPORT INFORMATION
  Report Type: 
  Country: None (occurrence: None)
  Receive Date: 20120409
  Receipt Date: 20120409
  Transmission Date: 20120825
  Serious: Yes (Other)
  Sender: FDA-Public Use
  Company Number: None

PATIENT
  Age: 62 Year
  Sex: Male
  Weight: 92.986 kg

DRUGS (1)
  1. VYTORIN [Suspect]
     Indication: BLOOD CHOLESTEROL INCREASED
     Dates: start: 20111230, end: 20120323

REACTIONS (4)
  - ANXIETY [None]
  - FATIGUE [None]
  - DEPRESSION SUICIDAL [None]
  - DEPRESSION [None]
